FAERS Safety Report 22773928 (Version 3)
Quarter: 2023Q4

REPORT INFORMATION
  Report Type: Report from Study
  Country: US (occurrence: US)
  Receive Date: 20230801
  Receipt Date: 20231024
  Transmission Date: 20240110
  Serious: Yes (Hospitalization, Other)
  Sender: FDA-Public Use
  Company Number: US-JAZZ PHARMACEUTICALS-2023-US-016042

PATIENT
  Age: 2 Year
  Sex: Male
  Weight: 5.2 kg

DRUGS (36)
  1. EPIDIOLEX [Suspect]
     Active Substance: CANNABIDIOL
     Indication: Product used for unknown indication
     Dosage: 1 MILLILITER, BID
     Route: 048
  2. CLONIDINE HYDROCHLORIDE [Concomitant]
     Active Substance: CLONIDINE HYDROCHLORIDE
     Indication: Product used for unknown indication
  3. FELBAMATE [Concomitant]
     Active Substance: FELBAMATE
     Indication: Product used for unknown indication
     Dosage: UNK
  4. FELBAMATE [Concomitant]
     Active Substance: FELBAMATE
     Dosage: UNK
  5. SABRIL [Concomitant]
     Active Substance: VIGABATRIN
     Indication: Product used for unknown indication
     Dosage: UNK
  6. SABRIL [Concomitant]
     Active Substance: VIGABATRIN
     Dosage: UNK
  7. SYNAGIS [Concomitant]
     Active Substance: PALIVIZUMAB
     Indication: Product used for unknown indication
     Dosage: UNK
  8. SYNAGIS [Concomitant]
     Active Substance: PALIVIZUMAB
     Dosage: UNK
  9. EPINEPHRINE [Concomitant]
     Active Substance: EPINEPHRINE
     Indication: Product used for unknown indication
     Dosage: UNK
  10. EPINEPHRINE [Concomitant]
     Active Substance: EPINEPHRINE
     Dosage: UNK
  11. CHOLECALCIFEROL [Concomitant]
     Active Substance: CHOLECALCIFEROL
     Indication: Product used for unknown indication
  12. ALBUTEROL SULFATE [Concomitant]
     Active Substance: ALBUTEROL SULFATE
     Indication: Product used for unknown indication
     Dosage: UNK
  13. ALBUTEROL SULFATE [Concomitant]
     Active Substance: ALBUTEROL SULFATE
     Dosage: UNK
  14. LEVOCARNITINE [Concomitant]
     Active Substance: LEVOCARNITINE
     Indication: Product used for unknown indication
     Dosage: UNK
  15. LEVOCARNITINE [Concomitant]
     Active Substance: LEVOCARNITINE
     Dosage: UNK
  16. TOBRAMYCIN SULFATE [Concomitant]
     Active Substance: TOBRAMYCIN SULFATE
     Indication: Product used for unknown indication
     Dosage: VIAL
  17. TOBRAMYCIN SULFATE [Concomitant]
     Active Substance: TOBRAMYCIN SULFATE
     Dosage: VIAL
  18. MIRALAX [Concomitant]
     Active Substance: POLYETHYLENE GLYCOL 3350
     Indication: Product used for unknown indication
     Dosage: POWD PACK
  19. MIRALAX [Concomitant]
     Active Substance: POLYETHYLENE GLYCOL 3350
     Dosage: POWD PACK
  20. GABAPENTIN [Concomitant]
     Active Substance: GABAPENTIN
     Indication: Product used for unknown indication
     Dosage: UNK
  21. GABAPENTIN [Concomitant]
     Active Substance: GABAPENTIN
     Dosage: UNK
  22. CLONAZEPAM [Concomitant]
     Active Substance: CLONAZEPAM
     Indication: Product used for unknown indication
     Dosage: RAPDIS
  23. CLONAZEPAM [Concomitant]
     Active Substance: CLONAZEPAM
     Dosage: RAPDIS
  24. MACRODANTIN [Concomitant]
     Active Substance: NITROFURANTOIN
     Indication: Product used for unknown indication
     Dosage: UNK
  25. MACRODANTIN [Concomitant]
     Active Substance: NITROFURANTOIN
     Dosage: UNK
  26. DEPAKOTE [Concomitant]
     Active Substance: DIVALPROEX SODIUM
     Indication: Product used for unknown indication
     Dosage: UNK
  27. DEPAKOTE [Concomitant]
     Active Substance: DIVALPROEX SODIUM
     Dosage: UNK
  28. VITAMINS NOS [Concomitant]
     Active Substance: VITAMINS
     Indication: Product used for unknown indication
     Dosage: UNK
  29. VITAMINS NOS [Concomitant]
     Active Substance: VITAMINS
     Dosage: UNK
  30. EFFER K [Concomitant]
     Indication: Product used for unknown indication
     Dosage: UNK
  31. EFFER K [Concomitant]
     Dosage: UNK
  32. VITAMIN D3 [Concomitant]
     Active Substance: CHOLECALCIFEROL
     Indication: Product used for unknown indication
     Dosage: 1MM UNIT/G LIQUID
  33. VITAMIN D3 [Concomitant]
     Active Substance: CHOLECALCIFEROL
     Dosage: 1MM UNIT/G LIQUID
  34. POTASSIUM CHLORIDE [Concomitant]
     Active Substance: POTASSIUM CHLORIDE
     Indication: Product used for unknown indication
  35. LASIX [Concomitant]
     Active Substance: FUROSEMIDE
     Indication: Product used for unknown indication
  36. KEPPRA XR [Concomitant]
     Active Substance: LEVETIRACETAM
     Indication: Product used for unknown indication

REACTIONS (4)
  - Seizure [Unknown]
  - Hospitalisation [Unknown]
  - Hospitalisation [Unknown]
  - Product administration interrupted [Unknown]

NARRATIVE: CASE EVENT DATE: 20230718
